FAERS Safety Report 17768252 (Version 1)
Quarter: 2020Q2

REPORT INFORMATION
  Report Type: Spontaneous
  Country: US (occurrence: US)
  Receive Date: 20200511
  Receipt Date: 20200511
  Transmission Date: 20200714
  Serious: No
  Sender: FDA-Public Use
  Company Number: US-TEVA-2020-US-1233003

PATIENT
  Sex: Female

DRUGS (1)
  1. METOPROLOL SUCCINATE TEVA [Suspect]
     Active Substance: METOPROLOL SUCCINATE
     Indication: HYPERTENSION
     Dosage: 50 MG
     Route: 065
     Dates: start: 202004

REACTIONS (3)
  - Abdominal discomfort [Unknown]
  - Product commingling [Unknown]
  - Diarrhoea [Unknown]
